FAERS Safety Report 20037657 (Version 3)
Quarter: 2021Q4

REPORT INFORMATION
  Report Type: Spontaneous
  Country: TR (occurrence: TR)
  Receive Date: 20211105
  Receipt Date: 20211230
  Transmission Date: 20220303
  Serious: Yes (Hospitalization)
  Sender: FDA-Public Use
  Company Number: TR-NOVOPROD-861873

PATIENT
  Sex: Male
  Weight: 2.8 kg

DRUGS (4)
  1. LEVEMIR [Suspect]
     Active Substance: INSULIN DETEMIR
     Indication: Gestational diabetes
     Dosage: 2 IU, QD
     Route: 064
     Dates: start: 20210727, end: 20210822
  2. EUTHYROX [Concomitant]
     Active Substance: LEVOTHYROXINE SODIUM
     Indication: Hypothyroidism
     Dosage: 175 ?G ONCE A DAY FOR 2 DAYS
     Route: 064
     Dates: end: 20210822
  3. EUTHYROX [Concomitant]
     Active Substance: LEVOTHYROXINE SODIUM
     Dosage: 125 ?G ONCE A DAY FOR 5 DAYS
     Route: 064
     Dates: end: 20210822
  4. ASPIRIN [Concomitant]
     Active Substance: ASPIRIN
     Indication: Antiplatelet therapy
     Dosage: UNK
     Route: 064

REACTIONS (6)
  - Jaundice neonatal [Recovered/Resolved]
  - Pulmonary oedema [Recovered/Resolved]
  - Sepsis [Recovered/Resolved]
  - Premature baby [Recovered/Resolved]
  - Enzyme level decreased [Not Recovered/Not Resolved]
  - Foetal exposure during pregnancy [Recovered/Resolved]

NARRATIVE: CASE EVENT DATE: 20210727
